FAERS Safety Report 17072047 (Version 2)
Quarter: 2019Q4

REPORT INFORMATION
  Report Type: Spontaneous
  Country: PA (occurrence: PA)
  Receive Date: 20191125
  Receipt Date: 20191209
  Transmission Date: 20200122
  Serious: Yes (Death, Life-Threatening, Hospitalization, Other)
  Sender: FDA-Public Use
  Company Number: PA-ASTRAZENECA-2019SF67826

PATIENT
  Age: 23349 Day
  Sex: Female

DRUGS (4)
  1. PRETERAX [Concomitant]
     Active Substance: INDAPAMIDE\PERINDOPRIL
     Indication: HYPERTENSION
     Dosage: 10/2.5MG ONE TABLET PER DAY
     Route: 048
     Dates: end: 20191021
  2. FORXIGA [Suspect]
     Active Substance: DAPAGLIFLOZIN
     Indication: TYPE 2 DIABETES MELLITUS
     Dosage: 1
     Route: 048
     Dates: start: 20190903, end: 20191021
  3. PROCOLARAN [Concomitant]
     Active Substance: IVABRADINE HYDROCHLORIDE
     Indication: CARDIAC FAILURE
     Dosage: 5MG, TWO TABLETS PER DAY
     Route: 048
     Dates: end: 20191021
  4. XIGDUO XR [Suspect]
     Active Substance: DAPAGLIFLOZIN PROPANEDIOL\METFORMIN HYDROCHLORIDE
     Dosage: 5/1000 MG ONE TABLET EVERY 12 HOURS
     Route: 048
     Dates: start: 20190808, end: 20191021

REACTIONS (7)
  - Pyrexia [Unknown]
  - Vomiting [Unknown]
  - Off label use [Unknown]
  - Septic shock [Fatal]
  - Constipation [Unknown]
  - Fournier^s gangrene [Fatal]
  - Necrotising fasciitis [Unknown]

NARRATIVE: CASE EVENT DATE: 20191018
